FAERS Safety Report 6093571-3 (Version None)
Quarter: 2009Q1

REPORT INFORMATION
  Report Type: 
  Country: None (occurrence: None)
  Receive Date: 20090224
  Receipt Date: 20090212
  Transmission Date: 20090719
  Serious: Yes (Hospitalization)
  Sender: FDA-Public Use
  Company Number: ENTC2009-0045

PATIENT
  Age: 47 Year
  Sex: Female

DRUGS (1)
  1. STALEVO 100 [Suspect]
     Indication: PARKINSON'S DISEASE
     Dosage: 4 TABS (200 E/100 L/25 C MG) /DAY
     Dates: start: 20060201

REACTIONS (2)
  - ABASIA [None]
  - DETOXIFICATION [None]
